FAERS Safety Report 7091672-4 (Version None)
Quarter: 2010Q4

REPORT INFORMATION
  Report Type: 
  Country: None (occurrence: None)
  Receive Date: 20101109
  Receipt Date: 20090813
  Transmission Date: 20110411
  Serious: No
  Sender: FDA-Public Use
  Company Number: US-KINGPHARMUSA00001-K200900983

PATIENT
  Sex: Male
  Weight: 68.027 kg

DRUGS (1)
  1. FLECTOR [Suspect]
     Indication: BACK PAIN
     Dosage: 1 PATCH, BID
     Route: 061
     Dates: start: 20090811, end: 20090812

REACTIONS (3)
  - HYPERSENSITIVITY [None]
  - PYREXIA [None]
  - RHINORRHOEA [None]
